FAERS Safety Report 15462873 (Version 1)
Quarter: 2018Q4

REPORT INFORMATION
  Report Type: Spontaneous
  Country: ES (occurrence: ES)
  Receive Date: 20181004
  Receipt Date: 20181004
  Transmission Date: 20190204
  Serious: Yes (Hospitalization, Other)
  Sender: FDA-Public Use
  Company Number: ES-VELOXIS PHARMACEUTICALS, INC.-2018VELES1206

PATIENT

DRUGS (2)
  1. ENVARSUS XR [Suspect]
     Active Substance: TACROLIMUS
     Indication: IMMUNOSUPPRESSANT DRUG THERAPY
  2. ENVARSUS XR [Suspect]
     Active Substance: TACROLIMUS
     Indication: LIVER TRANSPLANT
     Dosage: UNK, UNK
     Route: 048

REACTIONS (6)
  - Renal impairment [Recovered/Resolved]
  - Splenomegaly [Recovered/Resolved]
  - Seizure [Recovered/Resolved]
  - Ascites [Recovered/Resolved]
  - Liver transplant rejection [Recovered/Resolved]
  - Hydrothorax [Recovered/Resolved]
